FAERS Safety Report 25246418 (Version 1)
Quarter: 2025Q2

REPORT INFORMATION
  Report Type: Spontaneous
  Country: US (occurrence: US)
  Receive Date: 20250428
  Receipt Date: 20250428
  Transmission Date: 20250716
  Serious: No
  Sender: CORIUM
  Company Number: US-MIMS-CORIMC-5052

PATIENT

DRUGS (2)
  1. AZSTARYS [Suspect]
     Active Substance: DEXMETHYLPHENIDATE HYDROCHLORIDE\SERDEXMETHYLPHENIDATE CHLORIDE
     Indication: Product used for unknown indication
     Route: 065
  2. AZSTARYS [Suspect]
     Active Substance: DEXMETHYLPHENIDATE HYDROCHLORIDE\SERDEXMETHYLPHENIDATE CHLORIDE
     Route: 065

REACTIONS (2)
  - Psychomotor hyperactivity [Unknown]
  - Therapeutic response shortened [Unknown]
